FAERS Safety Report 6814414-3 (Version None)
Quarter: 2010Q3

REPORT INFORMATION
  Report Type: 
  Country: None (occurrence: None)
  Receive Date: 20100702
  Receipt Date: 20100625
  Transmission Date: 20110219
  Serious: Yes (Hospitalization, Other)
  Sender: FDA-Public Use
  Company Number: US-ABBOTT-08P-163-0453179-00

PATIENT
  Sex: Male
  Weight: 135.75 kg

DRUGS (13)
  1. DEPAKOTE [Suspect]
     Indication: CONVULSION
     Route: 048
     Dates: end: 20070101
  2. DEPAKOTE [Suspect]
     Route: 048
     Dates: start: 20091001, end: 20091001
  3. LORAZEPAM [Concomitant]
     Indication: PRODUCT USED FOR UNKNOWN INDICATION
  4. CARBAMAZEPINE [Concomitant]
     Indication: CONVULSION
     Dates: start: 20080101
  5. ZONISAMIDE [Concomitant]
     Indication: CONVULSION
  6. PROCHLORPERAZINE [Concomitant]
     Indication: HICCUPS
  7. ABILIFY [Concomitant]
     Indication: PRODUCT USED FOR UNKNOWN INDICATION
  8. TEGRETOL-XR [Concomitant]
     Indication: PRODUCT USED FOR UNKNOWN INDICATION
     Dosage: HIGH DOSE
     Dates: start: 20080101, end: 20080101
  9. TEGRETOL-XR [Concomitant]
     Dosage: LOWEST DOSE
  10. ZONOGRAN [Concomitant]
     Indication: PRODUCT USED FOR UNKNOWN INDICATION
  11. ZYPREXA [Concomitant]
     Indication: PRODUCT USED FOR UNKNOWN INDICATION
  12. KLONOPIN [Concomitant]
     Indication: PRODUCT USED FOR UNKNOWN INDICATION
  13. UNKNOWN OTHER MEDICATIONS [Concomitant]
     Indication: PRODUCT USED FOR UNKNOWN INDICATION

REACTIONS (7)
  - ABNORMAL BEHAVIOUR [None]
  - AGGRESSION [None]
  - CONVULSION [None]
  - DYSARTHRIA [None]
  - HYPERAMMONAEMIA [None]
  - POSTICTAL STATE [None]
  - PSYCHOTIC DISORDER [None]
